FAERS Safety Report 19001197 (Version 1)
Quarter: 2021Q1

REPORT INFORMATION
  Report Type: Spontaneous
  Country: US (occurrence: US)
  Receive Date: 20210308
  Receipt Date: 20210308
  Transmission Date: 20210420
  Serious: Yes (Other)
  Sender: FDA-Public Use
  Company Number: None

PATIENT
  Age: 69 Year
  Sex: Female
  Weight: 81 kg

DRUGS (19)
  1. LEVOTHYROXIN [Concomitant]
     Active Substance: LEVOTHYROXINE
  2. DULOXETINE. [Concomitant]
     Active Substance: DULOXETINE
  3. LACTULOSE. [Concomitant]
     Active Substance: LACTULOSE
  4. ADVAIR HFA [Concomitant]
     Active Substance: FLUTICASONE PROPIONATE\SALMETEROL XINAFOATE
  5. ZYRTEC [Concomitant]
     Active Substance: CETIRIZINE HYDROCHLORIDE
  6. METOPROLOL. [Concomitant]
     Active Substance: METOPROLOL
  7. CLONAZEPAM. [Concomitant]
     Active Substance: CLONAZEPAM
  8. LAMOTRIGINE. [Concomitant]
     Active Substance: LAMOTRIGINE
  9. DILAUDID [Concomitant]
     Active Substance: HYDROMORPHONE HYDROCHLORIDE
  10. ELIQUIS [Concomitant]
     Active Substance: APIXABAN
  11. FLUTICASONE SPRAY [Concomitant]
     Active Substance: FLUTICASONE
  12. SPIRONOLACTONE. [Concomitant]
     Active Substance: SPIRONOLACTONE
  13. PRAVASTATIN. [Concomitant]
     Active Substance: PRAVASTATIN
  14. NATURE MADE MULTIVITAMIN [Concomitant]
  15. LISINOPRIL. [Concomitant]
     Active Substance: LISINOPRIL
  16. CELEBREX [Concomitant]
     Active Substance: CELECOXIB
  17. PANTOPRAZOL [Concomitant]
     Active Substance: PANTOPRAZOLE SODIUM
  18. VITAMIN B12 [Concomitant]
     Active Substance: CYANOCOBALAMIN
  19. CLARISCAN [Suspect]
     Active Substance: GADOTERATE MEGLUMINE
     Indication: MAGNETIC RESONANCE IMAGING
     Dosage: ?          QUANTITY:18 CC OR ML;?
     Route: 042
     Dates: start: 20201012, end: 20201103

REACTIONS (10)
  - Pain [None]
  - Dizziness [None]
  - Diarrhoea [None]
  - Illness [None]
  - Vertigo [None]
  - Vomiting projectile [None]
  - Disorientation [None]
  - Parosmia [None]
  - Renal disorder [None]
  - Taste disorder [None]

NARRATIVE: CASE EVENT DATE: 20201103
